FAERS Safety Report 15716385 (Version 1)
Quarter: 2018Q4

REPORT INFORMATION
  Report Type: Spontaneous
  Country: FR (occurrence: FR)
  Receive Date: 20181213
  Receipt Date: 20181213
  Transmission Date: 20190205
  Serious: Yes (Hospitalization)
  Sender: FDA-Public Use
  Company Number: FR-TEVA-2018-FR-986127

PATIENT
  Age: 14 Year
  Sex: Female
  Weight: 77 kg

DRUGS (5)
  1. FLUOXETINE (CHLORHYDRATE DE) [Suspect]
     Active Substance: FLUOXETINE HYDROCHLORIDE
     Indication: POISONING DELIBERATE
     Route: 048
     Dates: start: 20181106, end: 20181106
  2. VALIUM [Suspect]
     Active Substance: DIAZEPAM
     Indication: ANXIETY
     Dosage: 20 MILLIGRAM DAILY;  TABLET SCORED
     Route: 048
     Dates: start: 20181109, end: 20181109
  3. QUETIAPINE. [Suspect]
     Active Substance: QUETIAPINE
     Indication: POISONING DELIBERATE
     Route: 048
     Dates: start: 20181106, end: 20181106
  4. TERCIAN 25 MG, TABLET COATED SCORED [Suspect]
     Active Substance: CYAMEMAZINE
     Indication: AGITATION
     Dosage: 50 MILLIGRAM DAILY;
     Route: 048
     Dates: start: 20181109, end: 20181109
  5. LOXAPAC, ORAL SOLUTION [Suspect]
     Active Substance: LOXAPINE
     Indication: AGITATION
     Dosage: 25 MILLIGRAM DAILY;
     Route: 048
     Dates: start: 20181110, end: 20181111

REACTIONS (3)
  - Altered state of consciousness [Recovered/Resolved]
  - Urinary retention [Recovered/Resolved]
  - Bladder dilatation [Recovered/Resolved]

NARRATIVE: CASE EVENT DATE: 20181106
